FAERS Safety Report 23452974 (Version 1)
Quarter: 2024Q1

REPORT INFORMATION
  Report Type: Spontaneous
  Country: US (occurrence: US)
  Receive Date: 20240129
  Receipt Date: 20240129
  Transmission Date: 20240409
  Serious: Yes (Other)
  Sender: FDA-Public Use
  Company Number: US-BRISTOL-MYERS SQUIBB COMPANY-2024-011868

PATIENT
  Age: 75 Year
  Sex: Male

DRUGS (1)
  1. THALOMID [Suspect]
     Active Substance: THALIDOMIDE
     Indication: Stem cell transplant
     Dosage: FREQUENCY: TAKE 1 CAPSULE BY MOUTH EVERY DAY.
     Route: 048

REACTIONS (2)
  - Product dose omission issue [Not Recovered/Not Resolved]
  - Off label use [Unknown]
